FAERS Safety Report 26157815 (Version 1)
Quarter: 2025Q4

REPORT INFORMATION
  Report Type: Spontaneous
  Country: US (occurrence: None)
  Receive Date: 20251215
  Receipt Date: 20251215
  Transmission Date: 20260117
  Serious: Yes (Hospitalization)
  Sender: FDA-CTU
  Company Number: None

PATIENT
  Age: 61 Year
  Sex: Male

DRUGS (2)
  1. AMOXICILLIN [Suspect]
     Active Substance: AMOXICILLIN
     Indication: Tooth infection
     Dates: start: 20250910
  2. GABAPENTIN [Suspect]
     Active Substance: GABAPENTIN
     Dates: start: 20250903, end: 20251003

REACTIONS (1)
  - Myoclonus [None]

NARRATIVE: CASE EVENT DATE: 20251028
